FAERS Safety Report 21200694 (Version 1)
Quarter: 2022Q3

REPORT INFORMATION
  Report Type: Spontaneous
  Country: US (occurrence: None)
  Receive Date: 20220810
  Receipt Date: 20220810
  Transmission Date: 20221026
  Serious: No
  Sender: FDA-Public Use
  Company Number: None

PATIENT
  Age: 57 Year
  Sex: Male
  Weight: 78.47 kg

DRUGS (13)
  1. ABIRATERONE [Suspect]
     Active Substance: ABIRATERONE
     Indication: Prostate cancer
     Dosage: 750MG DAILY ORAL?
     Route: 048
  2. AMLODIPINE BESYLATE [Concomitant]
     Active Substance: AMLODIPINE BESYLATE
  3. BICALUTAMIDE [Concomitant]
     Active Substance: BICALUTAMIDE
  4. CABERGOLINE [Concomitant]
     Active Substance: CABERGOLINE
  5. CALCITRIOL [Concomitant]
     Active Substance: CALCITRIOL
  6. CARBAMAZEPINE [Concomitant]
     Active Substance: CARBAMAZEPINE
  7. DULOXETINE HYDROCHLORIDE [Concomitant]
     Active Substance: DULOXETINE HYDROCHLORIDE
  8. FOLIC ACID [Concomitant]
     Active Substance: FOLIC ACID
  9. LEVOTHYROXINE SODIUM [Concomitant]
     Active Substance: LEVOTHYROXINE SODIUM
  10. LOSARTAN POTASSIUM [Concomitant]
     Active Substance: LOSARTAN POTASSIUM
  11. OXBRYTA [Concomitant]
     Active Substance: VOXELOTOR
  12. SIMVASTATIN [Concomitant]
     Active Substance: SIMVASTATIN
  13. VITAMIN D (CHOLECALICIFEROL) [Concomitant]

REACTIONS (1)
  - COVID-19 [None]
